FAERS Safety Report 6170971-4 (Version None)
Quarter: 2009Q2

REPORT INFORMATION
  Report Type: 
  Country: None (occurrence: None)
  Receive Date: 20090427
  Receipt Date: 20090427
  Transmission Date: 20091009
  Serious: No
  Sender: FDA-Public Use
  Company Number: None

PATIENT
  Age: 38 Year
  Sex: Male
  Weight: 140.6151 kg

DRUGS (2)
  1. CYMBALTA [Suspect]
     Indication: FATIGUE
     Dosage: 60 MG DAILY PO
     Route: 048
     Dates: start: 20070107, end: 20090413
  2. CYMBALTA [Suspect]
     Indication: FIBROMYALGIA
     Dosage: 60 MG DAILY PO
     Route: 048
     Dates: start: 20070107, end: 20090413

REACTIONS (5)
  - DRUG DEPENDENCE [None]
  - DRUG WITHDRAWAL SYNDROME [None]
  - IMPAIRED DRIVING ABILITY [None]
  - INSOMNIA [None]
  - PERFORMANCE STATUS DECREASED [None]
